FAERS Safety Report 7843872-0 (Version None)
Quarter: 2011Q4

REPORT INFORMATION
  Report Type: 
  Country: None (occurrence: None)
  Receive Date: 20111025
  Receipt Date: 20111019
  Transmission Date: 20120403
  Serious: Yes (Other)
  Sender: FDA-Public Use
  Company Number: US-PFIZER INC-2008037321

PATIENT
  Sex: Male
  Weight: 108.9 kg

DRUGS (5)
  1. IRON SULFATETHIAMIN COMPOUND TAB [Concomitant]
     Dosage: UNK
  2. CHANTIX [Suspect]
     Dates: start: 20080210
  3. PROTONIX [Concomitant]
     Indication: DYSPEPSIA
     Dosage: UNK
  4. RISPERDAL [Concomitant]
     Dosage: UNK
  5. DEPAKOTE [Concomitant]
     Dosage: UNK

REACTIONS (6)
  - VERTIGO [None]
  - LABYRINTHITIS [None]
  - ALTERED VISUAL DEPTH PERCEPTION [None]
  - LOSS OF CONSCIOUSNESS [None]
  - IMPAIRED DRIVING ABILITY [None]
  - NAUSEA [None]
